FAERS Safety Report 6017961-X (Version None)
Quarter: 2008Q4

REPORT INFORMATION
  Report Type: 
  Country: None (occurrence: None)
  Receive Date: 20081223
  Receipt Date: 20081222
  Transmission Date: 20090506
  Serious: Yes (Hospitalization)
  Sender: FDA-Public Use
  Company Number: US-ASTRAZENECA-2008UW28509

PATIENT
  Age: 14645 Day
  Sex: Female

DRUGS (2)
  1. NEXIUM [Suspect]
     Route: 048
     Dates: start: 20020710, end: 20081101
  2. FAMOTIDINE [Concomitant]

REACTIONS (1)
  - HIATUS HERNIA [None]
